FAERS Safety Report 16899490 (Version 1)
Quarter: 2019Q4

REPORT INFORMATION
  Report Type: Spontaneous
  Country: GB (occurrence: GB)
  Receive Date: 20191009
  Receipt Date: 20191009
  Transmission Date: 20200122
  Serious: Yes (Other)
  Sender: FDA-Public Use
  Company Number: GB-PFIZER INC-2019431207

PATIENT
  Age: 47 Year
  Sex: Female
  Weight: 70 kg

DRUGS (2)
  1. VENLAFAXINE HCL [Suspect]
     Active Substance: VENLAFAXINE HYDROCHLORIDE
     Indication: HOT FLUSH
     Dosage: 37.5 MG, UNK
     Route: 048
     Dates: start: 20190913, end: 20190913
  2. ANASTROZOLE. [Concomitant]
     Active Substance: ANASTROZOLE
     Dosage: UNK

REACTIONS (13)
  - Off label use [Unknown]
  - Malaise [Unknown]
  - Lethargy [Unknown]
  - Dystonia [Recovered/Resolved with Sequelae]
  - Nausea [Unknown]
  - Flushing [Unknown]
  - Feeling jittery [Unknown]
  - Tremor [Unknown]
  - Product use in unapproved indication [Unknown]
  - Tachycardia [Unknown]
  - Dizziness [Unknown]
  - Syncope [Unknown]
  - Dysarthria [Unknown]

NARRATIVE: CASE EVENT DATE: 20190913
